FAERS Safety Report 17470325 (Version 2)
Quarter: 2020Q3

REPORT INFORMATION
  Report Type: Spontaneous
  Country: MY (occurrence: MY)
  Receive Date: 20200227
  Receipt Date: 20200708
  Transmission Date: 20201102
  Serious: Yes (Death, Other)
  Sender: FDA-Public Use
  Company Number: MY-ROCHE-2554670

PATIENT
  Sex: Male

DRUGS (17)
  1. CYTARABINE. [Suspect]
     Active Substance: CYTARABINE
     Indication: DIFFUSE LARGE B-CELL LYMPHOMA
     Dosage: PART OF R?CHOP (PLUS IT METHOTREXATE, DEXAMETHASONE AND ARAC)
     Route: 065
     Dates: start: 201804, end: 201809
  2. RITUXIMAB. [Suspect]
     Active Substance: RITUXIMAB
     Indication: DIFFUSE LARGE B-CELL LYMPHOMA
     Dosage: PART OF R?CHOP (PLUS IT METHOTREXATE, DEXAMETHASONE AND ARAC)
     Route: 065
     Dates: start: 201804, end: 201809
  3. VINCRISTINE [Suspect]
     Active Substance: VINCRISTINE
     Indication: DIFFUSE LARGE B-CELL LYMPHOMA
     Dosage: PART OF R?CHOP (PLUS IT METHOTREXATE, DEXAMETHASONE AND ARAC)
     Route: 065
     Dates: start: 201804, end: 201809
  4. PREDNISOLONE. [Suspect]
     Active Substance: PREDNISOLONE
     Indication: DIFFUSE LARGE B-CELL LYMPHOMA
     Dosage: PART OF R?CHOP (PLUS IT METHOTREXATE, DEXAMETHASONE AND ARAC)
     Route: 065
     Dates: start: 201804, end: 201809
  5. DEXAMETHASONE. [Suspect]
     Active Substance: DEXAMETHASONE
     Indication: DIFFUSE LARGE B-CELL LYMPHOMA
     Dosage: PART OF R?CHOP (PLUS IT METHOTREXATE, DEXAMETHASONE AND ARAC)
     Route: 065
     Dates: start: 201804, end: 201809
  6. GAZYVARO [Concomitant]
     Active Substance: OBINUTUZUMAB
     Indication: DIFFUSE LARGE B-CELL LYMPHOMA
     Route: 042
  7. CARBOPLATIN. [Suspect]
     Active Substance: CARBOPLATIN
     Indication: DIFFUSE LARGE B-CELL LYMPHOMA
     Dosage: PART OF RICE
     Route: 065
     Dates: start: 201912, end: 202002
  8. DARZALEX [Concomitant]
     Active Substance: DARATUMUMAB
     Indication: DIFFUSE LARGE B-CELL LYMPHOMA
  9. ETOPOSIDE. [Suspect]
     Active Substance: ETOPOSIDE
     Indication: DIFFUSE LARGE B-CELL LYMPHOMA
     Dosage: PART OF RICE
     Route: 065
     Dates: start: 201912, end: 202002
  10. IFOSFAMIDE. [Suspect]
     Active Substance: IFOSFAMIDE
     Indication: DIFFUSE LARGE B-CELL LYMPHOMA
     Dosage: PART OF RICE
     Route: 065
     Dates: start: 201912, end: 202002
  11. DOXORUBICIN [Suspect]
     Active Substance: DOXORUBICIN
     Indication: DIFFUSE LARGE B-CELL LYMPHOMA
     Dosage: PART OF R?CHOP (PLUS IT METHOTREXATE, DEXAMETHASONE AND ARAC)
     Route: 065
     Dates: start: 201804, end: 201809
  12. METHOTREXATE. [Suspect]
     Active Substance: METHOTREXATE
     Indication: DIFFUSE LARGE B-CELL LYMPHOMA
     Dosage: PART OF R?CHOP (PLUS IT METHOTREXATE, DEXAMETHASONE AND ARAC)
     Route: 037
     Dates: start: 201804, end: 201809
  13. REVLIMID [Concomitant]
     Active Substance: LENALIDOMIDE
     Indication: DIFFUSE LARGE B-CELL LYMPHOMA
  14. NINLARO [Concomitant]
     Active Substance: IXAZOMIB CITRATE
     Indication: DIFFUSE LARGE B-CELL LYMPHOMA
  15. JAKAVI [RUXOLITINIB PHOSPHATE] [Concomitant]
     Active Substance: RUXOLITINIB PHOSPHATE
     Indication: DIFFUSE LARGE B-CELL LYMPHOMA
  16. RITUXIMAB. [Suspect]
     Active Substance: RITUXIMAB
     Indication: DIFFUSE LARGE B-CELL LYMPHOMA
     Dosage: AS PART OF R?ICE
     Route: 065
  17. CYCLOPHOSPHAMIDE. [Suspect]
     Active Substance: CYCLOPHOSPHAMIDE
     Indication: DIFFUSE LARGE B-CELL LYMPHOMA
     Dosage: PART OF R?CHOP (PLUS IT METHOTREXATE, DEXAMETHASONE AND ARAC)
     Route: 065
     Dates: start: 201804, end: 201809

REACTIONS (5)
  - Off label use [Unknown]
  - Disease progression [Unknown]
  - Product use issue [Unknown]
  - Drug ineffective [Unknown]
  - Death [Fatal]
